FAERS Safety Report 9341382 (Version 1)
Quarter: 2013Q2

REPORT INFORMATION
  Report Type: Spontaneous
  Country: FR (occurrence: FR)
  Receive Date: 20130611
  Receipt Date: 20130611
  Transmission Date: 20140414
  Serious: Yes (Hospitalization)
  Sender: FDA-Public Use
  Company Number: FR-JNJFOC-20130602811

PATIENT
  Age: 60 Year
  Sex: Male

DRUGS (8)
  1. XARELTO [Suspect]
     Indication: HIP ARTHROPLASTY
     Route: 048
     Dates: start: 20130417, end: 20130419
  2. XARELTO [Suspect]
     Indication: THROMBOSIS PROPHYLAXIS
     Route: 048
     Dates: start: 20130417, end: 20130419
  3. SPIRIVA [Concomitant]
     Route: 065
  4. PROFENID [Concomitant]
     Route: 065
  5. SINGULAIR [Concomitant]
     Route: 065
  6. DAFALGAN [Concomitant]
     Route: 065
  7. KARDEGIC [Concomitant]
     Route: 065
     Dates: end: 20130425
  8. SERETIDE [Concomitant]
     Route: 065

REACTIONS (1)
  - Pulmonary embolism [Unknown]
